FAERS Safety Report 9735625 (Version 1)
Quarter: 2013Q4

REPORT INFORMATION
  Report Type: Spontaneous
  Country: NL (occurrence: NL)
  Receive Date: 20131206
  Receipt Date: 20131206
  Transmission Date: 20140711
  Serious: Yes (Death, Other)
  Sender: FDA-Public Use
  Company Number: PHHY2013NL139515

PATIENT
  Age: 35 Year
  Sex: Female

DRUGS (1)
  1. CARBAMAZEPINE [Suspect]
     Indication: CONVULSION

REACTIONS (5)
  - Death [Fatal]
  - Oligoastrocytoma [Unknown]
  - Disease recurrence [Unknown]
  - Exposure during pregnancy [Unknown]
  - Delivery [Unknown]
